FAERS Safety Report 4642232-3 (Version None)
Quarter: 2005Q2

REPORT INFORMATION
  Report Type: 
  Country: None (occurrence: None)
  Receive Date: 20050422
  Receipt Date: 20050316
  Transmission Date: 20051028
  Serious: Yes (Hospitalization)
  Sender: FDA-Public Use
  Company Number: SE-BRISTOL-MYERS SQUIBB COMPANY-12900825

PATIENT
  Sex: Male

DRUGS (1)
  1. ABILIFY [Suspect]
     Dosage: DECREASED TO 15 MG/DAY
     Route: 048

REACTIONS (5)
  - BRADYCARDIA [None]
  - FALL [None]
  - HEAD INJURY [None]
  - ORTHOSTATIC HYPOTENSION [None]
  - SYNCOPE [None]
